FAERS Safety Report 15794885 (Version 5)
Quarter: 2019Q1

REPORT INFORMATION
  Report Type: Report from Study
  Country: CO (occurrence: CO)
  Receive Date: 20190107
  Receipt Date: 20190121
  Transmission Date: 20190417
  Serious: Yes (Life-Threatening, Hospitalization)
  Sender: FDA-Public Use
  Company Number: PHHY2017CO074419

PATIENT
  Age: 37 Year
  Sex: Female
  Weight: 51 kg

DRUGS (10)
  1. REVOLADE [Suspect]
     Active Substance: ELTROMBOPAG
     Dosage: 150 MG, Q12H
     Route: 048
     Dates: end: 201702
  2. ESOMEPRAZOLE. [Concomitant]
     Active Substance: ESOMEPRAZOLE MAGNESIUM
     Indication: PRODUCT USED FOR UNKNOWN INDICATION
     Dosage: UNK
     Route: 065
  3. REVOLADE [Suspect]
     Active Substance: ELTROMBOPAG
     Dosage: 75 MG, QD
     Route: 048
     Dates: start: 201604
  4. CALCIUM [Concomitant]
     Active Substance: CALCIUM
     Indication: BONE DISORDER
     Dosage: 600 MG, QD
     Route: 048
  5. REVOLADE [Suspect]
     Active Substance: ELTROMBOPAG
     Dosage: 75 MG, QD
     Route: 048
     Dates: start: 201810
  6. MYCOPHENOLATE MOFETIL. [Suspect]
     Active Substance: MYCOPHENOLATE MOFETIL
     Indication: SYSTEMIC LUPUS ERYTHEMATOSUS
     Dosage: 500 MG, QD
     Route: 048
  7. REVOLADE [Suspect]
     Active Substance: ELTROMBOPAG
     Dosage: 150 MG, Q12H
     Route: 048
     Dates: start: 20160325, end: 201702
  8. REVOLADE [Suspect]
     Active Substance: ELTROMBOPAG
     Dosage: 50 MG, QD
     Route: 048
     Dates: start: 201604
  9. CHLOROQUINE. [Concomitant]
     Active Substance: CHLOROQUINE
     Indication: MALARIA
     Dosage: 150 MG, QD
     Route: 048
  10. REVOLADE [Suspect]
     Active Substance: ELTROMBOPAG
     Indication: IMMUNE THROMBOCYTOPENIC PURPURA
     Dosage: 75 MG, QD
     Route: 048
     Dates: start: 20160310

REACTIONS (4)
  - Platelet count decreased [Unknown]
  - Contusion [Unknown]
  - Incorrect dosage administered [Unknown]
  - Platelet count abnormal [Unknown]

NARRATIVE: CASE EVENT DATE: 20170503
